FAERS Safety Report 25247872 (Version 1)
Quarter: 2025Q2

REPORT INFORMATION
  Report Type: Spontaneous
  Country: US (occurrence: US)
  Receive Date: 20250429
  Receipt Date: 20250429
  Transmission Date: 20250717
  Serious: Yes (Other)
  Sender: BRISTOL-MYERS SQUIBB COMPANY
  Company Number: US-BRISTOL-MYERS SQUIBB COMPANY-2025-045276

PATIENT
  Age: 66 Year
  Sex: Male

DRUGS (1)
  1. ELIQUIS [Suspect]
     Active Substance: APIXABAN
     Indication: Thrombosis

REACTIONS (7)
  - Inability to afford medication [Unknown]
  - Therapy interrupted [Unknown]
  - Dizziness [Unknown]
  - Loss of consciousness [Unknown]
  - Fracture [Unknown]
  - Lower limb fracture [Unknown]
  - Hip fracture [Unknown]
